FAERS Safety Report 9284952 (Version 1)
Quarter: 2013Q2

REPORT INFORMATION
  Report Type: Report from Study
  Country: US (occurrence: US)
  Receive Date: 20130513
  Receipt Date: 20130513
  Transmission Date: 20140414
  Serious: No
  Sender: FDA-Public Use
  Company Number: PHEH2013US009915

PATIENT
  Age: 79 Year
  Sex: Male

DRUGS (3)
  1. EXELON PATCH [Suspect]
     Indication: DEMENTIA ALZHEIMER^S TYPE
     Dosage: 4.6 MG, DAILY
     Route: 062
     Dates: start: 2010
  2. LIPITOR [Concomitant]
     Dosage: UNK UKN, UNK
  3. OXYBUTYNIN [Concomitant]
     Dosage: UNK UKN, UNK

REACTIONS (2)
  - Poor quality sleep [Not Recovered/Not Resolved]
  - Urinary incontinence [Not Recovered/Not Resolved]
